FAERS Safety Report 15439188 (Version 3)
Quarter: 2019Q2

REPORT INFORMATION
  Report Type: Spontaneous
  Country: US (occurrence: US)
  Receive Date: 20180928
  Receipt Date: 20190626
  Transmission Date: 20190711
  Serious: No
  Sender: FDA-Public Use
  Company Number: US-PFIZER INC-2018392324

PATIENT
  Age: 55 Year
  Sex: Female

DRUGS (2)
  1. PRISTIQ EXTENDED-RELEASE [Suspect]
     Active Substance: DESVENLAFAXINE SUCCINATE
     Indication: BIPOLAR DISORDER
     Dosage: 100 MG, 1X/DAY
     Dates: start: 2006
  2. LYRICA [Concomitant]
     Active Substance: PREGABALIN
     Dosage: UNK
     Dates: start: 2000

REACTIONS (6)
  - Oesophageal disorder [Unknown]
  - Oropharyngeal pain [Unknown]
  - Off label use [Unknown]
  - Speech disorder [Unknown]
  - Product use in unapproved indication [Unknown]
  - Frustration tolerance decreased [Unknown]
